FAERS Safety Report 15016361 (Version 1)
Quarter: 2018Q2

REPORT INFORMATION
  Report Type: Spontaneous
  Country: AU (occurrence: AU)
  Receive Date: 20180615
  Receipt Date: 20180615
  Transmission Date: 20180711
  Serious: Yes (Other)
  Sender: FDA-Public Use
  Company Number: AU-APOTEX-2018AP015572

PATIENT
  Age: 74 Year
  Sex: Female

DRUGS (6)
  1. DERALIN                            /00030001/ [Concomitant]
     Indication: BLOOD PRESSURE MANAGEMENT
     Route: 065
  2. APO-CLARITHROMYCIN [Suspect]
     Active Substance: CLARITHROMYCIN
     Indication: INFLUENZA
  3. ATACAND [Concomitant]
     Active Substance: CANDESARTAN CILEXETIL
     Indication: BLOOD PRESSURE MANAGEMENT
     Route: 065
  4. APO-CLARITHROMYCIN [Suspect]
     Active Substance: CLARITHROMYCIN
     Indication: NASOPHARYNGITIS
     Dosage: 2 DF, QD
     Route: 048
  5. INSULIN [Concomitant]
     Active Substance: INSULIN NOS
     Indication: DIABETES MELLITUS
     Route: 065
  6. DERALIN                            /00030001/ [Concomitant]
     Indication: HEART RATE ABNORMAL

REACTIONS (4)
  - Pharyngeal oedema [Unknown]
  - Dyspnoea [Unknown]
  - Respiratory tract oedema [Unknown]
  - Oral candidiasis [Unknown]
